FAERS Safety Report 22316060 (Version 1)
Quarter: 2023Q2

REPORT INFORMATION
  Report Type: Spontaneous
  Country: US (occurrence: US)
  Receive Date: 20230512
  Receipt Date: 20230512
  Transmission Date: 20230722
  Serious: No
  Sender: FDA-Public Use
  Company Number: US-GALDERMA-US2023006685

PATIENT

DRUGS (6)
  1. PROACTIV MD ADAPALENE ACNE TREATMENT [Suspect]
     Active Substance: ADAPALENE
     Indication: Rash papular
     Dosage: 1 DOSAGE FORM, QD
     Route: 061
     Dates: start: 2022, end: 2023
  2. Proactiv MD Ultra Gentle Cleanser [Concomitant]
     Indication: Rash papular
     Dosage: 1 DOSAGE FORM, BID
     Route: 061
     Dates: start: 2022, end: 2023
  3. Proactiv MD Ultra Hydrating Moisturizer [Concomitant]
     Indication: Rash papular
     Dosage: 1 DOSAGE FORM, BID
     Route: 061
     Dates: start: 2022, end: 2023
  4. PROACTIV ACNE BODY WASH [Concomitant]
     Active Substance: SALICYLIC ACID
     Indication: Rash papular
     Dosage: 1 DOSAGE FORM, BID
     Route: 061
     Dates: start: 2022, end: 2023
  5. Proactiv Amazonian Clay Mask [Concomitant]
     Indication: Rash papular
     Dosage: 1 DOSAGE FORM, BID
     Route: 061
     Dates: start: 2022, end: 2023
  6. VITAMINS NOS [Concomitant]
     Active Substance: VITAMINS
     Indication: Product used for unknown indication
     Route: 065

REACTIONS (3)
  - Skin burning sensation [Recovered/Resolved]
  - Product use issue [Recovered/Resolved]
  - Product use in unapproved indication [Recovered/Resolved]

NARRATIVE: CASE EVENT DATE: 20220101
